FAERS Safety Report 15929680 (Version 1)
Quarter: 2019Q1

REPORT INFORMATION
  Report Type: Spontaneous
  Country: CH (occurrence: CH)
  Receive Date: 20190206
  Receipt Date: 20190206
  Transmission Date: 20190417
  Serious: Yes (Death)
  Sender: FDA-Public Use
  Company Number: CH-ELI_LILLY_AND_COMPANY-CH201901001840

PATIENT
  Age: 48 Year
  Sex: Female

DRUGS (1)
  1. FORSTEO 250UG/ML [Suspect]
     Active Substance: TERIPARATIDE
     Indication: FRACTURE
     Dosage: 20 UG, DAILY
     Route: 058
     Dates: start: 20180118, end: 20180810

REACTIONS (2)
  - Off label use [Recovered/Resolved]
  - Death [Fatal]

NARRATIVE: CASE EVENT DATE: 2018
